FAERS Safety Report 16690138 (Version 1)
Quarter: 2019Q3

REPORT INFORMATION
  Report Type: Report from Study
  Country: GB (occurrence: GB)
  Receive Date: 20190809
  Receipt Date: 20190809
  Transmission Date: 20191004
  Serious: Yes (Other)
  Sender: FDA-Public Use
  Company Number: PHHY2019GB182904

PATIENT
  Sex: Male

DRUGS (1)
  1. HYRIMOZ [Suspect]
     Active Substance: ADALIMUMAB-ADAZ
     Indication: PSORIATIC ARTHROPATHY
     Dosage: 0.8 ML, Q2W, PRE-FILLED PEN
     Route: 058

REACTIONS (3)
  - Syncope [Recovering/Resolving]
  - Nervousness [Recovering/Resolving]
  - Dizziness [Recovering/Resolving]
